FAERS Safety Report 8509543-2 (Version None)
Quarter: 2012Q3

REPORT INFORMATION
  Report Type: 
  Country: None (occurrence: None)
  Receive Date: 20120713
  Receipt Date: 20120702
  Transmission Date: 20120928
  Serious: Yes (Other)
  Sender: FDA-Public Use
  Company Number: FR-BRISTOL-MYERS SQUIBB COMPANY-16731739

PATIENT
  Age: 67 Year
  Sex: Female

DRUGS (4)
  1. CARMUSTINE [Suspect]
     Indication: METASTATIC MALIGNANT MELANOMA
  2. DACARBAZINE [Suspect]
     Indication: METASTATIC MALIGNANT MELANOMA
  3. CISPLATIN [Suspect]
     Indication: METASTATIC MALIGNANT MELANOMA
  4. IPILIMUMAB [Suspect]
     Indication: MALIGNANT MELANOMA

REACTIONS (1)
  - SARCOIDOSIS [None]
